FAERS Safety Report 7990425-X (Version None)
Quarter: 2011Q4

REPORT INFORMATION
  Report Type: 
  Country: None (occurrence: None)
  Receive Date: 20111219
  Receipt Date: 20110509
  Transmission Date: 20120403
  Serious: Yes (Disabling)
  Sender: FDA-Public Use
  Company Number: US-ASTRAZENECA-2011SE27938

PATIENT
  Age: 5 Year
  Sex: Female
  Weight: 82.6 kg

DRUGS (12)
  1. ALBUTERO [Concomitant]
  2. HYDROCHLOROTHIAZIDE [Concomitant]
  3. CRESTOR [Suspect]
     Indication: HYPERLIPIDAEMIA
     Route: 048
     Dates: start: 20070705
  4. NITROGLYCERIN [Concomitant]
  5. TOPROL-XL [Concomitant]
     Route: 048
  6. LISINOPRIL [Concomitant]
     Route: 048
  7. CALCIUM [Concomitant]
  8. FLOVENT [Concomitant]
  9. DOCUSATE [Concomitant]
  10. FISH OIL [Concomitant]
  11. ASPIRIN [Concomitant]
  12. VIT C [Concomitant]

REACTIONS (1)
  - MYALGIA [None]
